FAERS Safety Report 11525562 (Version 1)
Quarter: 2015Q3

REPORT INFORMATION
  Report Type: Spontaneous
  Country: US (occurrence: US)
  Receive Date: 20150918
  Receipt Date: 20150918
  Transmission Date: 20151125
  Serious: Yes (Death, Other)
  Sender: FDA-Public Use
  Company Number: US-TAKEDA-TPA2012A02583

PATIENT

DRUGS (5)
  1. ACTOS [Suspect]
     Active Substance: PIOGLITAZONE HYDROCHLORIDE
     Dates: start: 2005
  2. HUMULIN R [Concomitant]
     Active Substance: INSULIN HUMAN
  3. NOLUIN [Concomitant]
  4. ACTOS [Suspect]
     Active Substance: PIOGLITAZONE HYDROCHLORIDE
     Indication: TYPE 2 DIABETES MELLITUS
  5. LISPRO [Concomitant]
     Active Substance: INSULIN LISPRO

REACTIONS (3)
  - Pain [Unknown]
  - Bladder cancer [Fatal]
  - Blindness [Unknown]

NARRATIVE: CASE EVENT DATE: 2009
